FAERS Safety Report 5136044-4 (Version None)
Quarter: 2006Q4

REPORT INFORMATION
  Report Type: 
  Country: None (occurrence: None)
  Receive Date: 20061020
  Receipt Date: 20061004
  Transmission Date: 20070319
  Serious: Yes (Life-Threatening)
  Sender: FDA-Public Use
  Company Number: 2006BL005869

PATIENT
  Age: 70 Year
  Sex: Female

DRUGS (11)
  1. GENTAMICIN SULFATE [Suspect]
     Indication: ENDOSCOPY GASTROINTESTINAL
     Dosage: 120 MILLIGRAMS;1 DAY; INTRAVENOUS
     Route: 042
     Dates: start: 20060721, end: 20060721
  2. GENTAMICIN SULFATE [Suspect]
     Indication: PROPHYLAXIS
     Dosage: 120 MILLIGRAMS;1 DAY; INTRAVENOUS
     Route: 042
     Dates: start: 20060721, end: 20060721
  3. AMOXICILLIN [Suspect]
     Indication: ENDOSCOPY GASTROINTESTINAL
     Dosage: 1 GRAM;1 DAY;INTRAVENOUS
     Route: 042
     Dates: start: 20060721, end: 20060721
  4. AMOXICILLIN [Suspect]
     Indication: PROPHYLAXIS
     Dosage: 1 GRAM;1 DAY;INTRAVENOUS
     Route: 042
     Dates: start: 20060721, end: 20060721
  5. BISOPROLOL FUMARATE [Concomitant]
  6. CANDESARTAN [Concomitant]
  7. ELANTAN - SLOW RELEASE [Concomitant]
  8. FUROSEMIDE [Concomitant]
  9. ACETAMINOPHEN [Concomitant]
  10. WARFARIN SODIUM [Concomitant]
  11. BENZYLPENICILLIN [Concomitant]

REACTIONS (3)
  - ANAPHYLACTIC REACTION [None]
  - HYPOTENSION [None]
  - PO2 DECREASED [None]
